FAERS Safety Report 24289557 (Version 1)
Quarter: 2024Q3

REPORT INFORMATION
  Report Type: Spontaneous
  Country: FR (occurrence: FR)
  Receive Date: 20240906
  Receipt Date: 20240906
  Transmission Date: 20241016
  Serious: Yes (Other)
  Sender: ABBVIE
  Company Number: None

PATIENT
  Age: 38 Year
  Sex: Female
  Weight: 60 kg

DRUGS (1)
  1. BOTOX [Suspect]
     Active Substance: ONABOTULINUMTOXINA
     Indication: Skin cosmetic procedure
     Dosage: TIME INTERVAL: AS NECESSARY
     Route: 065
     Dates: start: 20240801, end: 20240801

REACTIONS (3)
  - Muscular weakness [Not Recovered/Not Resolved]
  - Off label use [Recovered/Resolved]
  - Product administered by wrong person [Recovered/Resolved]

NARRATIVE: CASE EVENT DATE: 20240801
